FAERS Safety Report 20361350 (Version 1)
Quarter: 2022Q1

REPORT INFORMATION
  Report Type: Spontaneous
  Country: US (occurrence: None)
  Receive Date: 20220120
  Receipt Date: 20220120
  Transmission Date: 20220423
  Serious: Yes (Hospitalization)
  Sender: FDA-Public Use
  Company Number: None

PATIENT
  Age: 56 Year
  Sex: Female
  Weight: 128 kg

DRUGS (1)
  1. WARFARIN [Suspect]
     Active Substance: WARFARIN
     Indication: Deep vein thrombosis
     Dosage: OTHER FREQUENCY : 10MGMWF 7.5 MG AOD;?
     Route: 048
     Dates: start: 20190101

REACTIONS (4)
  - Haematochezia [None]
  - Anticoagulation drug level above therapeutic [None]
  - Gastrointestinal haemorrhage [None]
  - Blood loss anaemia [None]

NARRATIVE: CASE EVENT DATE: 20220109
